FAERS Safety Report 19578817 (Version 1)
Quarter: 2021Q3

REPORT INFORMATION
  Report Type: Spontaneous
  Country: JP (occurrence: JP)
  Receive Date: 20210719
  Receipt Date: 20210719
  Transmission Date: 20211014
  Serious: Yes (Hospitalization, Other)
  Sender: FDA-Public Use
  Company Number: JP-PFIZER INC-2021840566

PATIENT
  Age: 69 Year
  Sex: Male

DRUGS (3)
  1. CARERAM [Concomitant]
     Active Substance: IGURATIMOD
  2. RHEUMATREX [Suspect]
     Active Substance: METHOTREXATE SODIUM
     Indication: RHEUMATOID ARTHRITIS
     Dosage: 12 MG
     Route: 048
  3. FOLIAMIN [Concomitant]
     Active Substance: FOLIC ACID

REACTIONS (1)
  - Lung neoplasm malignant [Recovering/Resolving]
